FAERS Safety Report 9107394 (Version 2)
Quarter: 2013Q3

REPORT INFORMATION
  Report Type: Report from Study
  Country: CN (occurrence: CN)
  Receive Date: 20130221
  Receipt Date: 20130830
  Transmission Date: 20140515
  Serious: Yes (Hospitalization)
  Sender: FDA-Public Use
  Company Number: CN-JNJFOC-20130100112

PATIENT
  Age: 40 Year
  Sex: Male
  Weight: 65 kg

DRUGS (3)
  1. PALIPERIDONE PALMITATE [Suspect]
     Indication: SCHIZOPHRENIA
     Route: 030
     Dates: end: 20121128
  2. PALIPERIDONE PALMITATE [Suspect]
     Indication: SCHIZOPHRENIA
     Route: 030
     Dates: start: 20121121
  3. OLANZAPINE [Concomitant]
     Route: 065

REACTIONS (1)
  - Schizophrenia [Recovered/Resolved]
